FAERS Safety Report 20004237 (Version 1)
Quarter: 2021Q4

REPORT INFORMATION
  Report Type: Spontaneous
  Country: GB (occurrence: GB)
  Receive Date: 20211027
  Receipt Date: 20211027
  Transmission Date: 20220303
  Serious: Yes (Other)
  Sender: FDA-Public Use
  Company Number: None

PATIENT
  Age: 33 Year
  Sex: Female
  Weight: 87.99 kg

DRUGS (3)
  1. CITALOPRAM [Suspect]
     Active Substance: CITALOPRAM HYDROBROMIDE
     Indication: Ill-defined disorder
     Dosage: 40 MILLIGRAM
     Route: 048
     Dates: start: 2010
  2. CITALOPRAM [Suspect]
     Active Substance: CITALOPRAM HYDROBROMIDE
     Indication: Depression
  3. CITALOPRAM [Suspect]
     Active Substance: CITALOPRAM HYDROBROMIDE
     Indication: Anxiety

REACTIONS (8)
  - Sluggishness [Not Recovered/Not Resolved]
  - Dry mouth [Not Recovered/Not Resolved]
  - Anorgasmia [Not Recovered/Not Resolved]
  - Memory impairment [Not Recovered/Not Resolved]
  - Disturbance in attention [Not Recovered/Not Resolved]
  - Weight increased [Not Recovered/Not Resolved]
  - Mental impairment [Not Recovered/Not Resolved]
  - Abnormal dreams [Not Recovered/Not Resolved]
